FAERS Safety Report 5480703-0 (Version None)
Quarter: 2007Q4

REPORT INFORMATION
  Report Type: 
  Country: None (occurrence: None)
  Receive Date: 20071009
  Receipt Date: 20070925
  Transmission Date: 20080405
  Serious: No
  Sender: FDA-Public Use
  Company Number: US-ELI_LILLY_AND_COMPANY-US200709005783

PATIENT
  Sex: Female

DRUGS (5)
  1. CYMBALTA [Suspect]
     Indication: COMPLEX REGIONAL PAIN SYNDROME
     Dosage: 60 MG, DAILY (1/D)
     Dates: start: 20060901
  2. ZYRTEC [Concomitant]
  3. BECONASE [Concomitant]
  4. FOSAMAX [Concomitant]
  5. LEVOXYL [Concomitant]

REACTIONS (1)
  - BLOOD BILIRUBIN INCREASED [None]
